FAERS Safety Report 7301778-X (Version None)
Quarter: 2011Q1

REPORT INFORMATION
  Report Type: 
  Country: None (occurrence: None)
  Receive Date: 20110218
  Receipt Date: 20110215
  Transmission Date: 20110831
  Serious: Yes (Death, Hospitalization)
  Sender: FDA-Public Use
  Company Number: A0913791A

PATIENT
  Age: 55 Year
  Sex: Male

DRUGS (5)
  1. ARIXTRA [Suspect]
     Indication: PRODUCT USED FOR UNKNOWN INDICATION
     Dosage: 7.5MG PER DAY
     Route: 058
     Dates: start: 20110126
  2. ETOPOSIDE [Concomitant]
  3. ALOXI [Concomitant]
  4. BONIVA [Concomitant]
  5. CISPLATIN [Concomitant]

REACTIONS (2)
  - HAEMORRHAGE [None]
  - HAEMOPTYSIS [None]
